FAERS Safety Report 10031289 (Version 1)
Quarter: 2014Q1

REPORT INFORMATION
  Report Type: Spontaneous
  Country: US (occurrence: US)
  Receive Date: 20140324
  Receipt Date: 20140324
  Transmission Date: 20141002
  Serious: Yes (Hospitalization)
  Sender: FDA-Public Use
  Company Number: US-BRISTOL-MYERS SQUIBB COMPANY-20472676

PATIENT
  Age: 72 Year
  Sex: Male

DRUGS (2)
  1. WARFARIN SODIUM [Suspect]
     Indication: ATRIAL FIBRILLATION
     Dosage: 1DF:6 UNIT NOS?REDUCED TO 5,4,3,1 AND THEN TO 1/2 TAB
  2. INSULIN [Concomitant]

REACTIONS (2)
  - Blood creatinine increased [Unknown]
  - Wrong technique in drug usage process [Unknown]
